FAERS Safety Report 12435589 (Version 1)
Quarter: 2016Q2

REPORT INFORMATION
  Report Type: Spontaneous
  Country: US (occurrence: US)
  Receive Date: 20160603
  Receipt Date: 20160603
  Transmission Date: 20160815
  Serious: Yes (Other)
  Sender: FDA-Public Use
  Company Number: US-ROCHE-1637837

PATIENT
  Age: 9 Month
  Sex: Male

DRUGS (2)
  1. ACTH [Concomitant]
     Active Substance: CORTICOTROPIN
     Route: 065
  2. KLONOPIN [Suspect]
     Active Substance: CLONAZEPAM
     Indication: INFANTILE SPASMS
     Route: 065

REACTIONS (1)
  - Seizure [Recovered/Resolved]
